FAERS Safety Report 23866478 (Version 1)
Quarter: 2024Q2

REPORT INFORMATION
  Report Type: Spontaneous
  Country: CA (occurrence: CA)
  Receive Date: 20240517
  Receipt Date: 20240517
  Transmission Date: 20240716
  Serious: Yes (Other)
  Sender: FDA-Public Use
  Company Number: CA-HIKMA PHARMACEUTICALS USA INC.-CA-H14001-24-03952

PATIENT
  Age: 37 Year
  Sex: Female

DRUGS (6)
  1. CONTRAVE [Suspect]
     Active Substance: BUPROPION HYDROCHLORIDE\NALTREXONE HYDROCHLORIDE
     Dosage: 2 DOSAGE FORMS, BID
     Route: 048
  2. CONTRAVE [Suspect]
     Active Substance: BUPROPION HYDROCHLORIDE\NALTREXONE HYDROCHLORIDE
     Indication: Weight control
     Dosage: UNK, BID
     Route: 048
  3. CONTRAVE [Suspect]
     Active Substance: BUPROPION HYDROCHLORIDE\NALTREXONE HYDROCHLORIDE
     Indication: Weight control
     Dosage: UNK
     Route: 048
  4. FENTANYL [Suspect]
     Active Substance: FENTANYL\FENTANYL CITRATE
     Indication: Product used for unknown indication
     Dosage: UNK
     Route: 065
  5. PROPOFOL [Suspect]
     Active Substance: PROPOFOL
     Indication: General anaesthesia
     Dosage: UNKNOWN
     Route: 065
  6. BACILLUS COAGULANS;BACILLUS MESENTERICUS;CEFIXIME TRIHYDRATE;CLOSTRIDI [Concomitant]
     Indication: Attention deficit hyperactivity disorder
     Dosage: UNKNOWN
     Route: 048

REACTIONS (10)
  - Cardiac operation [Recovered/Resolved]
  - Contraindicated product administered [Recovered/Resolved]
  - Drug interaction [Recovered/Resolved]
  - Food craving [Recovered/Resolved]
  - Hunger [Recovered/Resolved]
  - Intentional product use issue [Recovered/Resolved]
  - Labelled drug-drug interaction issue [Recovered/Resolved]
  - Nausea [Recovered/Resolved]
  - Procedural pain [Recovered/Resolved]
  - Product dose omission issue [Recovered/Resolved]
